FAERS Safety Report 19497963 (Version 5)
Quarter: 2023Q1

REPORT INFORMATION
  Report Type: Report from Study
  Country: JP (occurrence: JP)
  Receive Date: 20210706
  Receipt Date: 20230125
  Transmission Date: 20230418
  Serious: Yes (Hospitalization)
  Sender: FDA-Public Use
  Company Number: JP-JNJFOC-20210646186

PATIENT
  Age: 73 Year
  Sex: Male
  Weight: 68.4 kg

DRUGS (56)
  1. APALUTAMIDE [Suspect]
     Active Substance: APALUTAMIDE
     Indication: Prostate cancer
     Route: 048
     Dates: start: 20210209, end: 20210319
  2. APALUTAMIDE [Suspect]
     Active Substance: APALUTAMIDE
     Dosage: CYCLE-5
     Route: 048
     Dates: start: 20210602, end: 20210614
  3. GOSERELIN ACETATE [Suspect]
     Active Substance: GOSERELIN ACETATE
     Indication: Prostate cancer
     Route: 058
     Dates: start: 20210209
  4. AMLODIPINE [Concomitant]
     Active Substance: AMLODIPINE BESYLATE
     Indication: Hypertension
     Route: 048
     Dates: start: 201009
  5. OLMESARTAN [Concomitant]
     Active Substance: OLMESARTAN
     Indication: Hypertension
     Route: 048
     Dates: start: 201009
  6. PRAVASTATIN [Concomitant]
     Active Substance: PRAVASTATIN
     Indication: Hyperlipidaemia
     Route: 048
     Dates: start: 20170306
  7. IMIDAFENACIN [Concomitant]
     Active Substance: IMIDAFENACIN
     Indication: Hypertonic bladder
     Route: 048
     Dates: start: 20190902
  8. SILODOSIN [Concomitant]
     Active Substance: SILODOSIN
     Indication: Benign prostatic hyperplasia
     Route: 048
     Dates: start: 20130116
  9. FAMOTIDINE [Concomitant]
     Active Substance: FAMOTIDINE
     Indication: Gastrointestinal disorder therapy
     Route: 048
     Dates: start: 201009
  10. URSODIOL [Concomitant]
     Active Substance: URSODIOL
     Indication: Aspartate aminotransferase increased
     Route: 048
     Dates: start: 20201215
  11. URSODIOL [Concomitant]
     Active Substance: URSODIOL
     Indication: Alanine aminotransferase decreased
  12. AMMONIUM GLYCYRRHIZATE [Concomitant]
     Active Substance: AMMONIUM GLYCYRRHIZATE
     Route: 065
  13. PIRENOXINE [Concomitant]
     Active Substance: PIRENOXINE
     Indication: Eye pain
     Dosage: 1 DROP/DOSE
     Route: 047
  14. NEO-MEDROL EYE-EAR [Concomitant]
     Indication: Eye pain
     Route: 061
  15. TADALAFIL [Concomitant]
     Active Substance: TADALAFIL
     Indication: Hypertonic bladder
     Route: 048
  16. TADALAFIL [Concomitant]
     Active Substance: TADALAFIL
     Indication: Benign prostatic hyperplasia
  17. MIRABEGRON [Concomitant]
     Active Substance: MIRABEGRON
     Indication: Hypertonic bladder
     Route: 048
  18. MIRABEGRON [Concomitant]
     Active Substance: MIRABEGRON
     Indication: Benign prostatic hyperplasia
  19. LEVOCETIRIZINE [Concomitant]
     Active Substance: LEVOCETIRIZINE
     Indication: Seasonal allergy
     Route: 048
     Dates: start: 20210308
  20. FLUTICASONE FUROATE [Concomitant]
     Active Substance: FLUTICASONE FUROATE
     Indication: Seasonal allergy
     Dosage: 2 SPRAYS
     Route: 065
     Dates: start: 20210308
  21. FEXOFENADINE [Concomitant]
     Active Substance: FEXOFENADINE HYDROCHLORIDE
     Route: 048
  22. DROTAVERINE HYDROCHLORIDE;PARACETAMOL [Concomitant]
  23. FEXOFENADINE [Concomitant]
     Active Substance: FEXOFENADINE HYDROCHLORIDE
     Route: 065
  24. CLOBETASOL [Concomitant]
     Active Substance: CLOBETASOL
     Route: 065
  25. GLYCOSAMINOGLYCANS [Concomitant]
     Active Substance: GLYCOSAMINOGLYCANS
     Route: 065
  26. GENTAMICIN SULFATE [Concomitant]
     Active Substance: GENTAMICIN SULFATE
     Route: 065
  27. LOXOPROFEN [Concomitant]
     Active Substance: LOXOPROFEN
  28. EPERISONE HYDROCHLORIDE [Concomitant]
     Active Substance: EPERISONE HYDROCHLORIDE
  29. FUROSEMIDE [Concomitant]
     Active Substance: FUROSEMIDE
     Indication: Renal failure
     Dates: start: 20220325
  30. CALONAL [Concomitant]
     Active Substance: ACETAMINOPHEN
  31. LEVOTHYROXINE SODIUM [Concomitant]
     Active Substance: LEVOTHYROXINE SODIUM
  32. DEXTROSE\SODIUM CHLORIDE\SODIUM LACTATE [Concomitant]
     Active Substance: DEXTROSE\SODIUM CHLORIDE\SODIUM LACTATE
  33. CEFTRIAXONE SODIUM [Concomitant]
     Active Substance: CEFTRIAXONE SODIUM
  34. MEROPENEM [Concomitant]
     Active Substance: MEROPENEM
  35. BETAMETHASONE [Concomitant]
     Active Substance: BETAMETHASONE
  36. SOLU-MEDROL [Concomitant]
     Active Substance: METHYLPREDNISOLONE SODIUM SUCCINATE
     Route: 042
  37. LANSOPRAZOLE [Concomitant]
     Active Substance: LANSOPRAZOLE
     Indication: Gastrointestinal disorder therapy
     Route: 048
     Dates: start: 20210619
  38. SULFAMETHOXAZOLE\TRIMETHOPRIM [Concomitant]
     Active Substance: SULFAMETHOXAZOLE\TRIMETHOPRIM
  39. ALFACAL [Concomitant]
     Indication: Renal failure
     Dates: start: 20210623
  40. ALENDRONATE SODIUM [Concomitant]
     Active Substance: ALENDRONATE SODIUM
  41. ATOVAQUONE [Concomitant]
     Active Substance: ATOVAQUONE
     Indication: Prophylaxis
     Dates: start: 20210626
  42. REBAMIPIDE [Concomitant]
     Active Substance: REBAMIPIDE
  43. CALCIUM POLYSTYRENE SULFONATE [Concomitant]
     Active Substance: CALCIUM POLYSTYRENE SULFONATE
  44. PIRENOXINE [Concomitant]
     Active Substance: PIRENOXINE
  45. POLYETHYLENE GLYCOLS [Concomitant]
     Active Substance: POLYETHYLENE GLYCOLS
  46. NERIZA [Concomitant]
  47. HUMULINA REGULAR [Concomitant]
  48. XYLOCAINE [Concomitant]
     Active Substance: LIDOCAINE HYDROCHLORIDE
  49. FEBUXOSTAT [Concomitant]
     Active Substance: FEBUXOSTAT
  50. DARBEPOETIN ALFA [Concomitant]
     Active Substance: DARBEPOETIN ALFA
  51. NIFEDIPINE [Concomitant]
     Active Substance: NIFEDIPINE
     Indication: Hypertension
     Dates: start: 20220225
  52. DRIED FERROUS SULPHATE [Concomitant]
     Indication: Nephrogenic anaemia
     Route: 048
     Dates: start: 20210708
  53. CALCIUM POLYSTYRENE SULFONATE [Concomitant]
     Active Substance: CALCIUM POLYSTYRENE SULFONATE
     Indication: Hyperkalaemia
     Route: 048
  54. DOXAZOSIN MESYLATE [Concomitant]
     Active Substance: DOXAZOSIN MESYLATE
     Indication: Hypertension
     Route: 048
     Dates: start: 20220325
  55. HEPARINOID [Concomitant]
     Indication: Prophylaxis
     Route: 061
  56. LANTHANUM CARBONATE [Concomitant]
     Active Substance: LANTHANUM CARBONATE
     Indication: Hyperphosphataemia
     Route: 048

REACTIONS (2)
  - Glomerulonephritis rapidly progressive [Not Recovered/Not Resolved]
  - Microscopic polyangiitis [Not Recovered/Not Resolved]

NARRATIVE: CASE EVENT DATE: 20210615
